FAERS Safety Report 14257242 (Version 2)
Quarter: 2018Q1

REPORT INFORMATION
  Report Type: Report from Study
  Country: BR (occurrence: BR)
  Receive Date: 20171206
  Receipt Date: 20180102
  Transmission Date: 20180508
  Serious: Yes (Hospitalization, Other)
  Sender: FDA-Public Use
  Company Number: PHHY2017BR178803

PATIENT
  Sex: Female
  Weight: 52 kg

DRUGS (20)
  1. OXYCONTIN [Suspect]
     Active Substance: OXYCODONE HYDROCHLORIDE
     Indication: PAIN
     Route: 065
  2. MABTHERA [Concomitant]
     Active Substance: RITUXIMAB
     Indication: PRODUCT USED FOR UNKNOWN INDICATION
     Route: 065
  3. FUROSEMIDE. [Concomitant]
     Active Substance: FUROSEMIDE
     Indication: CARDIAC DISORDER
     Dosage: 1 DF, QD
     Route: 048
  4. PANTOPRAZOLE [Concomitant]
     Active Substance: PANTOPRAZOLE
     Indication: GASTRITIS
     Dosage: 1 DF, QD
     Route: 048
  5. VELIJA [Concomitant]
     Active Substance: DULOXETINE HYDROCHLORIDE
     Indication: DIABETES MELLITUS
     Dosage: 1 DF, QD
     Route: 048
  6. PREDNISONE. [Concomitant]
     Active Substance: PREDNISONE
     Indication: ASTHMA
  7. HUMULIN NOS [Concomitant]
     Active Substance: INSULIN HUMAN
     Indication: DIABETES MELLITUS
     Dosage: 1 DF, QD
     Route: 058
  8. VITAMIN D [Concomitant]
     Active Substance: CHOLECALCIFEROL
     Indication: PRODUCT USED FOR UNKNOWN INDICATION
     Dosage: 15 DF, QD
     Route: 065
  9. CALCIUM [Concomitant]
     Active Substance: CALCIUM
     Indication: PRODUCT USED FOR UNKNOWN INDICATION
     Dosage: UNK, QHS
     Route: 065
  10. ACLASTA [Suspect]
     Active Substance: ZOLEDRONIC ACID
     Indication: OSTEOPOROSIS
     Dosage: 1 DF (5 MG/100 ML), Q12MO
     Route: 042
     Dates: start: 20170830
  11. AMIODARONE [Concomitant]
     Active Substance: AMIODARONE
     Indication: CARDIAC DISORDER
     Dosage: 1 DF, QD
     Route: 048
  12. AMLODIPINE [Concomitant]
     Active Substance: AMLODIPINE BESYLATE
     Indication: HYPERTENSION
     Dosage: 1 DF, QD
     Route: 048
  13. PREDNISONE. [Concomitant]
     Active Substance: PREDNISONE
     Indication: MYASTHENIA GRAVIS
     Dosage: 0.5 DF, QOD
     Route: 048
  14. NOVORAPID [Concomitant]
     Active Substance: INSULIN ASPART
     Indication: DIABETES MELLITUS
     Dosage: 3 DF (ONE OF 5 IU AND TWO 3 IU), QD
     Route: 058
  15. MESTINON [Concomitant]
     Active Substance: PYRIDOSTIGMINE BROMIDE
     Indication: MYASTHENIA GRAVIS
     Dosage: 2 DF, QD
     Route: 048
  16. ALENIA [Concomitant]
     Active Substance: BUDESONIDE\FORMOTEROL FUMARATE
     Indication: BRONCHITIS
  17. HIXIZINE [Concomitant]
     Active Substance: HYDROXYZINE HYDROCHLORIDE
     Indication: HYPERSENSITIVITY
     Dosage: 1 DF, QD
     Route: 048
  18. ALENIA [Concomitant]
     Active Substance: BUDESONIDE\FORMOTEROL FUMARATE
     Indication: ASTHMA
     Dosage: 1 DF (12/400 MCG), QD
     Route: 055
  19. LOSARTAN. [Concomitant]
     Active Substance: LOSARTAN
     Indication: HYPERTENSION
     Dosage: 2 DF, QD
     Route: 048
  20. PREDNISONE. [Concomitant]
     Active Substance: PREDNISONE
     Indication: LUPUS PNEUMONITIS

REACTIONS (17)
  - Decreased appetite [Not Recovered/Not Resolved]
  - Delirium [Unknown]
  - Sleep disorder [Unknown]
  - Aortic stenosis [Not Recovered/Not Resolved]
  - Pain in extremity [Unknown]
  - Pain [Recovering/Resolving]
  - Arthralgia [Unknown]
  - Cerebrovascular disorder [Unknown]
  - Lung infection [Recovered/Resolved]
  - Lung disorder [Unknown]
  - Chronic gastritis [Not Recovered/Not Resolved]
  - Weight decreased [Not Recovered/Not Resolved]
  - Delusion [Unknown]
  - Dysphagia [Not Recovered/Not Resolved]
  - Sciatica [Recovering/Resolving]
  - Gait disturbance [Unknown]
  - Pneumonia [Unknown]
